FAERS Safety Report 23696134 (Version 1)
Quarter: 2024Q2

REPORT INFORMATION
  Report Type: Spontaneous
  Country: US (occurrence: None)
  Receive Date: 20240401
  Receipt Date: 20240401
  Transmission Date: 20240716
  Serious: Yes (Other)
  Sender: FDA-Public Use
  Company Number: None

PATIENT
  Sex: Female

DRUGS (7)
  1. BOTOX [Suspect]
     Active Substance: ONABOTULINUMTOXINA
     Indication: Migraine
     Dosage: FREQ: INJECT UP TO 200 UNITS IN THE MUSCLE INTO HEAD AND NECK EVERY 12 WEEKS FOR CHORIC MIGRAINE PER
     Route: 050
     Dates: start: 20230425
  2. AMITRIPTYLIN TAB 50MG [Concomitant]
  3. LISINOPRIL TAB 40MG [Concomitant]
  4. METFORMIN TAB 750MG ER [Concomitant]
  5. OZEMPIC INJ 8MG/3ML [Concomitant]
  6. PROPRANOLOL TAB 20MG [Concomitant]
  7. WELLBUTRIN TAB 150MG SR [Concomitant]

REACTIONS (1)
  - Shoulder arthroplasty [None]
